FAERS Safety Report 5472575-5 (Version None)
Quarter: 2007Q4

REPORT INFORMATION
  Report Type: 
  Country: None (occurrence: None)
  Receive Date: 20071001
  Receipt Date: 20060216
  Transmission Date: 20080405
  Serious: No
  Sender: FDA-Public Use
  Company Number: US-ASTRAZENECA-2006UW02628

PATIENT
  Age: 63 Year
  Sex: Female

DRUGS (3)
  1. ARIMIDEX [Suspect]
     Indication: BREAST CANCER
     Route: 048
     Dates: start: 20060201, end: 20060210
  2. BETA BLOCKER [Concomitant]
  3. COUMADIN [Concomitant]

REACTIONS (1)
  - ATRIAL FIBRILLATION [None]
